FAERS Safety Report 9010435 (Version 1)
Quarter: 2013Q1

REPORT INFORMATION
  Report Type: Spontaneous
  Country: IT (occurrence: IT)
  Receive Date: 20130109
  Receipt Date: 20130109
  Transmission Date: 20140127
  Serious: Yes (Hospitalization)
  Sender: FDA-Public Use
  Company Number: IT-TEVA-378913ISR

PATIENT
  Age: 72 Year
  Sex: Male

DRUGS (7)
  1. SOTALOL [Suspect]
     Dosage: 120 MILLIGRAM DAILY;
     Route: 048
     Dates: start: 20111211, end: 20121211
  2. CITALOPRAM SANDOZ [Interacting]
     Dosage: 20 MILLIGRAM DAILY;
     Route: 048
     Dates: start: 20121208, end: 20121211
  3. HALDOL [Interacting]
     Route: 048
  4. CARDIOASPIRIN [Concomitant]
  5. HUMALOG [Concomitant]
  6. LANTUS [Concomitant]
  7. PLAVIX [Concomitant]

REACTIONS (3)
  - Hypotension [Recovering/Resolving]
  - Tachycardia [Recovering/Resolving]
  - Drug interaction [Recovering/Resolving]
